FAERS Safety Report 14376030 (Version 1)
Quarter: 2018Q1

REPORT INFORMATION
  Report Type: Spontaneous
  Country: CA (occurrence: CA)
  Receive Date: 20180111
  Receipt Date: 20180111
  Transmission Date: 20180509
  Serious: Yes (Other)
  Sender: FDA-Public Use
  Company Number: CA-CELLTRION INC.-2018CA017220

PATIENT

DRUGS (24)
  1. PREGABALIN. [Concomitant]
     Active Substance: PREGABALIN
  2. DEPO-PROVERA [Concomitant]
     Active Substance: MEDROXYPROGESTERONE ACETATE
  3. APO-CLONAZEPAM [Concomitant]
     Active Substance: CLONAZEPAM
  4. APO IBUPROFEN [Concomitant]
     Active Substance: IBUPROFEN
  5. STELARA [Concomitant]
     Active Substance: USTEKINUMAB
  6. HUMIRA [Concomitant]
     Active Substance: ADALIMUMAB
  7. BIOTENE                            /03475601/ [Concomitant]
  8. APO-CYCLOBENZAPRINE [Concomitant]
     Active Substance: CYCLOBENZAPRINE
  9. APO MOMETASONE [Concomitant]
     Active Substance: MOMETASONE
  10. BIAXIN [Concomitant]
     Active Substance: CLARITHROMYCIN
  11. IBUPROFEN. [Concomitant]
     Active Substance: IBUPROFEN
     Dosage: UNK
     Dates: start: 20170613
  12. APO QUETIAPINE [Concomitant]
  13. DILAUDID [Concomitant]
     Active Substance: HYDROMORPHONE HYDROCHLORIDE
  14. APO ESOMEPRAZOLE [Concomitant]
     Active Substance: ESOMEPRAZOLE MAGNESIUM
  15. SUBOXONE [Concomitant]
     Active Substance: BUPRENORPHINE HYDROCHLORIDE\NALOXONE HYDROCHLORIDE
  16. LASIX [Concomitant]
     Active Substance: FUROSEMIDE
  17. INFLECTRA [Suspect]
     Active Substance: INFLIXIMAB-DYYB
     Indication: ANKYLOSING SPONDYLITIS
     Dosage: 538 MG, CYCLIC (EVERY 0, 2,6 WEEKS, THEN EVERY 6 WEEKS)
     Route: 042
     Dates: start: 20171110
  18. VAPO [Concomitant]
  19. CETIRIZINE [Concomitant]
     Active Substance: CETIRIZINE HYDROCHLORIDE
  20. APO-SALVENT                        /00139501/ [Concomitant]
  21. COLLAGENASE SANTYL [Concomitant]
     Active Substance: COLLAGENASE CLOSTRIDIUM HISTOLYTICUM
  22. RHINARIS NOZOIL [Concomitant]
  23. SINUS RINSE [Concomitant]
     Active Substance: SODIUM BICARBONATE\SODIUM CHLORIDE
  24. APO AMITRIPTYLINE [Concomitant]
     Active Substance: AMITRIPTYLINE

REACTIONS (4)
  - Fall [Unknown]
  - Head injury [Unknown]
  - Syncope [Unknown]
  - Loss of consciousness [Unknown]
